FAERS Safety Report 5771680-3 (Version None)
Quarter: 2008Q2

REPORT INFORMATION
  Report Type: 
  Country: None (occurrence: None)
  Receive Date: 20080613
  Receipt Date: 20080602
  Transmission Date: 20081010
  Serious: Yes (Hospitalization, Disabling)
  Sender: FDA-Public Use
  Company Number: GB-BRISTOL-MYERS SQUIBB COMPANY-14221048

PATIENT
  Age: 69 Year
  Sex: Male

DRUGS (6)
  1. MITOTANE [Suspect]
     Indication: ADRENAL CARCINOMA
     Dates: start: 20080414, end: 20080515
  2. ASPIRIN [Concomitant]
  3. HYDROCORTISONE [Concomitant]
  4. OMEPRAZOLE [Concomitant]
  5. ACETAMINOPHEN [Concomitant]
  6. SIMVASTATIN [Concomitant]

REACTIONS (3)
  - ABASIA [None]
  - ASTHENIA [None]
  - NEUROTOXICITY [None]
